FAERS Safety Report 5787838-3 (Version None)
Quarter: 2008Q2

REPORT INFORMATION
  Report Type: 
  Country: None (occurrence: None)
  Receive Date: 20080624
  Receipt Date: 20080624
  Transmission Date: 20081010
  Serious: Yes (Other)
  Sender: FDA-Public Use
  Company Number: None

PATIENT
  Age: 61 Year
  Sex: Male
  Weight: 99.7913 kg

DRUGS (1)
  1. RAMIPRIL 10MG -GENERIC FOR AL 10MG [Suspect]
     Indication: HYPERTENSION
     Dosage: 10MG 1X DAILY PO
     Route: 048
     Dates: start: 20080314, end: 20080520

REACTIONS (1)
  - URINARY RETENTION [None]
